FAERS Safety Report 24054203 (Version 2)
Quarter: 2024Q4

REPORT INFORMATION
  Report Type: Report from Study
  Country: VN (occurrence: VN)
  Receive Date: 20240705
  Receipt Date: 20241118
  Transmission Date: 20250115
  Serious: Yes (Hospitalization)
  Sender: ROCHE
  Company Number: VN-ROCHE-10000016689

PATIENT
  Age: 61 Year
  Sex: Male

DRUGS (1)
  1. TECENTRIQ [Suspect]
     Active Substance: ATEZOLIZUMAB
     Indication: Small cell lung cancer extensive stage
     Route: 042
     Dates: start: 20231115, end: 20240621

REACTIONS (1)
  - Disease progression [Not Recovered/Not Resolved]

NARRATIVE: CASE EVENT DATE: 20240621
